FAERS Safety Report 24619578 (Version 1)
Quarter: 2024Q4

REPORT INFORMATION
  Report Type: Spontaneous
  Country: JP (occurrence: JP)
  Receive Date: 20241114
  Receipt Date: 20241114
  Transmission Date: 20250114
  Serious: Yes (Other)
  Sender: GENMAB
  Company Number: JP-GENMAB-2024-04075

PATIENT
  Age: 8 Decade
  Sex: Male

DRUGS (3)
  1. EPKINLY [Suspect]
     Active Substance: EPCORITAMAB-BYSP
     Indication: Primary mediastinal large B-cell lymphoma
     Dosage: UNK, DAY1, SINGLE
     Route: 058
     Dates: start: 20240918, end: 20240918
  2. EPKINLY [Suspect]
     Active Substance: EPCORITAMAB-BYSP
     Dosage: UNK, DAY8, SINGLE
     Route: 058
     Dates: start: 20240925, end: 20240925
  3. EPKINLY [Suspect]
     Active Substance: EPCORITAMAB-BYSP
     Dosage: 48 MILLIGRAM, DAY15
     Route: 058
     Dates: start: 20241002, end: 20241002

REACTIONS (3)
  - Primary mediastinal large B-cell lymphoma [Unknown]
  - Pleural effusion [Unknown]
  - Obstructive airways disorder [Unknown]

NARRATIVE: CASE EVENT DATE: 20241008
